FAERS Safety Report 7527487-X (Version None)
Quarter: 2011Q2

REPORT INFORMATION
  Report Type: 
  Country: None (occurrence: None)
  Receive Date: 20110607
  Receipt Date: 20110603
  Transmission Date: 20111010
  Serious: Yes (Hospitalization, Other)
  Sender: FDA-Public Use
  Company Number: US-JNJFOC-20101200664

PATIENT
  Sex: Male

DRUGS (1)
  1. LEVAQUIN [Suspect]
     Indication: INFECTION
     Route: 048
     Dates: start: 20060101, end: 20081231

REACTIONS (10)
  - TENDON INJURY [None]
  - EMOTIONAL DISTRESS [None]
  - ABDOMINAL INJURY [None]
  - TENDON RUPTURE [None]
  - ANXIETY [None]
  - DEPRESSION [None]
  - OBSESSIVE-COMPULSIVE DISORDER [None]
  - INSOMNIA [None]
  - MUSCLE RUPTURE [None]
  - NAUSEA [None]
